FAERS Safety Report 4409372-5 (Version None)
Quarter: 2004Q3

REPORT INFORMATION
  Report Type: 
  Country: None (occurrence: None)
  Receive Date: 20040722
  Receipt Date: 20040707
  Transmission Date: 20050211
  Serious: Yes (Other)
  Sender: FDA-Public Use
  Company Number: 197253

PATIENT
  Age: 49 Year
  Sex: Female
  Weight: 49.8957 kg

DRUGS (5)
  1. AVONEX [Suspect]
     Indication: MULTIPLE SCLEROSIS
     Dosage: 30 MCG QW IM
     Route: 030
     Dates: start: 20000801
  2. FIORICET [Concomitant]
  3. TRILEPTAL [Concomitant]
  4. BACLOFEN [Concomitant]
  5. AMANTADINE HCL [Concomitant]

REACTIONS (1)
  - HEPATITIS C [None]
